FAERS Safety Report 7447126-6 (Version None)
Quarter: 2011Q2

REPORT INFORMATION
  Report Type: 
  Country: None (occurrence: None)
  Receive Date: 20110429
  Receipt Date: 20110418
  Transmission Date: 20111010
  Serious: Yes (Other)
  Sender: FDA-Public Use
  Company Number: US-ELI_LILLY_AND_COMPANY-US201009004080

PATIENT
  Sex: Female

DRUGS (21)
  1. VITAMIN B-12 [Concomitant]
     Dosage: UNK UNK, MONTHLY (1/M)
  2. CALCIUM VIT D [Concomitant]
     Dosage: 1200 MG, QD
  3. VALIUM [Concomitant]
     Dosage: 5 MG, PRN
  4. FORTEO [Suspect]
     Dosage: 20 UG, QD
  5. CALCIUM [Concomitant]
     Dosage: 300000 MG, QD
  6. EFFEXOR XR [Concomitant]
     Dosage: 150 MG, QD
  7. GABAPENTIN [Concomitant]
     Dosage: 900 MG, TID
  8. FORTEO [Suspect]
     Dosage: 20 UG, DAILY (1/D)
  9. VITAMIN B-12 [Concomitant]
     Dosage: 500 MG, QD
     Route: 060
  10. FLEXERIL [Concomitant]
     Dosage: 10 MG, TID
  11. CALCIUM [Concomitant]
     Indication: MINERAL SUPPLEMENTATION
     Dosage: UNK, UNKNOWN
  12. OXYCONTIN [Concomitant]
     Dosage: 20 MG, BID
  13. TRAZODONE HCL [Concomitant]
     Dosage: 150 MG, QD
  14. SYNTHROID [Concomitant]
  15. ESTRACE [Concomitant]
     Dosage: 1 MG, QD
  16. FORTEO [Suspect]
     Indication: OSTEOPOROSIS
     Dosage: 20 UG, DAILY (1/D)
     Dates: start: 20100716
  17. FORTEO [Suspect]
     Dosage: 20 UG, DAILY (1/D)
  18. FORTEO [Suspect]
     Dosage: 20 UG, DAILY (1/D)
  19. CALCIUM [Concomitant]
     Dosage: 2000 U, UNKNOWN
  20. PRASTERONE [Concomitant]
     Dosage: 5 MG, BID
  21. LIDODERM [Concomitant]
     Dosage: UNK, BID
     Route: 062

REACTIONS (18)
  - NECK PAIN [None]
  - ASTHENIA [None]
  - BONE DISORDER [None]
  - BLOOD CALCIUM DECREASED [None]
  - BACK PAIN [None]
  - PARAESTHESIA [None]
  - HYPOAESTHESIA [None]
  - MUSCULAR WEAKNESS [None]
  - PAIN IN EXTREMITY [None]
  - CONTUSION [None]
  - FEELING ABNORMAL [None]
  - MUSCLE SPASMS [None]
  - GAIT DISTURBANCE [None]
  - SPINAL DISORDER [None]
  - ABASIA [None]
  - CALCIUM DEFICIENCY [None]
  - JOINT INJURY [None]
  - FALL [None]
